FAERS Safety Report 15725466 (Version 1)
Quarter: 2018Q4

REPORT INFORMATION
  Report Type: Report from Study
  Country: ES (occurrence: ES)
  Receive Date: 20181215
  Receipt Date: 20181215
  Transmission Date: 20190205
  Serious: Yes (Other)
  Sender: FDA-Public Use
  Company Number: ES-TEVA-2018-ES-986384

PATIENT
  Age: 86 Year
  Sex: Female

DRUGS (7)
  1. SERTRALINA (2537A) [Concomitant]
     Active Substance: SERTRALINE HYDROCHLORIDE
  2. TRAJENTA [Concomitant]
     Active Substance: LINAGLIPTIN
  3. OMEPRAZOL (2141A) [Concomitant]
     Active Substance: OMEPRAZOLE
  4. LEXATIN 1,5 MG CAPSULAS DURAS [Concomitant]
  5. ATORVASTATINA 20 MG COMPRIMIDO [Concomitant]
     Active Substance: ATORVASTATIN
  6. ADIRO [Concomitant]
     Active Substance: ASPIRIN
  7. ENALAPRIL 20 MG COMPRIMIDO [Suspect]
     Active Substance: ENALAPRIL
     Indication: HYPERTENSION
     Dosage: 20 MILLIGRAM DAILY;
     Route: 048
     Dates: start: 20180619, end: 20180706

REACTIONS (1)
  - Chronic kidney disease [Recovering/Resolving]

NARRATIVE: CASE EVENT DATE: 20180706
